FAERS Safety Report 22347124 (Version 1)
Quarter: 2023Q2

REPORT INFORMATION
  Report Type: Spontaneous
  Country: US (occurrence: US)
  Receive Date: 20230520
  Receipt Date: 20230520
  Transmission Date: 20230721
  Serious: No
  Sender: FDA-Public Use
  Company Number: US-JNJFOC-20230545462

PATIENT
  Sex: Female

DRUGS (1)
  1. CONCERTA [Suspect]
     Active Substance: METHYLPHENIDATE HYDROCHLORIDE
     Indication: Attention deficit hyperactivity disorder
     Dosage: STARTED METHYLPHENIDATE 1 TO 2 YEARS AGO
     Route: 048

REACTIONS (2)
  - Product odour abnormal [Unknown]
  - Poor quality product administered [Unknown]
